FAERS Safety Report 6601389-5 (Version None)
Quarter: 2010Q1

REPORT INFORMATION
  Report Type: 
  Country: None (occurrence: None)
  Receive Date: 20100224
  Receipt Date: 20100224
  Transmission Date: 20100710
  Serious: Yes (Hospitalization)
  Sender: FDA-Public Use
  Company Number: None

PATIENT
  Age: 60 Year
  Sex: Female
  Weight: 53.3 kg

DRUGS (1)
  1. LEVAQUIN [Suspect]
     Indication: SINUSITIS
     Dosage: 750 MG 1 PER DAY 047
     Dates: start: 20081022, end: 20091027

REACTIONS (5)
  - AGITATION [None]
  - CONFUSIONAL STATE [None]
  - DIZZINESS [None]
  - INSOMNIA [None]
  - ROTATOR CUFF SYNDROME [None]
